FAERS Safety Report 10583770 (Version 4)
Quarter: 2015Q2

REPORT INFORMATION
  Report Type: Spontaneous
  Country: US (occurrence: US)
  Receive Date: 20141114
  Receipt Date: 20150624
  Transmission Date: 20150821
  Serious: Yes (Hospitalization)
  Sender: FDA-Public Use
  Company Number: US-BAYER-2014-166375

PATIENT
  Age: 35 Year
  Sex: Female

DRUGS (13)
  1. SALINE [Concomitant]
     Active Substance: SODIUM CHLORIDE
  2. ZOFRAN [Concomitant]
     Active Substance: ONDANSETRON HYDROCHLORIDE
  3. TORADOL [Concomitant]
     Active Substance: KETOROLAC TROMETHAMINE
  4. BENADRYL [Concomitant]
     Active Substance: DIPHENHYDRAMINE HYDROCHLORIDE
     Dosage: 25-50MG
  5. TEMAZEPAM. [Concomitant]
     Active Substance: TEMAZEPAM
     Dosage: 15 MG, UNK
  6. FENTANYL. [Concomitant]
     Active Substance: FENTANYL
  7. NORCO [Concomitant]
     Active Substance: ACETAMINOPHEN\HYDROCODONE BITARTRATE
     Dosage: 5-325MG
  8. FLOMAX (TAMSULOSIN) [Concomitant]
     Dosage: 0.4 MG, UNK
  9. MORPHINE [Concomitant]
     Active Substance: MORPHINE
  10. MIRENA [Suspect]
     Active Substance: LEVONORGESTREL
     Indication: CONTRACEPTION
     Dosage: 20 MCG/24HR, CONT
     Route: 015
     Dates: start: 20060414, end: 20110519
  11. MIRENA [Suspect]
     Active Substance: LEVONORGESTREL
     Indication: CONTRACEPTION
     Dosage: 20 MCG/24HR, CONT
     Route: 015
     Dates: start: 20110519, end: 20121214
  12. KETOROLAC [Concomitant]
     Active Substance: KETOROLAC\KETOROLAC TROMETHAMINE
  13. LORTAB [Concomitant]
     Active Substance: ACETAMINOPHEN\HYDROCODONE BITARTRATE
     Dosage: 500 MG, UNK
     Dates: start: 20121211

REACTIONS (10)
  - Device dislocation [None]
  - Calculus urethral [None]
  - Nephrolithiasis [None]
  - Device issue [None]
  - Vomiting [None]
  - Injury [None]
  - Pain [None]
  - Flank pain [None]
  - Nausea [None]
  - Emotional distress [None]

NARRATIVE: CASE EVENT DATE: 201210
